FAERS Safety Report 16359096 (Version 1)
Quarter: 2019Q2

REPORT INFORMATION
  Report Type: Spontaneous
  Country: US (occurrence: US)
  Receive Date: 20190527
  Receipt Date: 20190527
  Transmission Date: 20190711
  Serious: No
  Sender: FDA-Public Use
  Company Number: US-SA-2019SA138218

PATIENT
  Age: 55 Year
  Sex: Female

DRUGS (10)
  1. METFORMIN [Concomitant]
     Active Substance: METFORMIN HYDROCHLORIDE
  2. MELOXICAM. [Concomitant]
     Active Substance: MELOXICAM
  3. DUPIXENT [Suspect]
     Active Substance: DUPILUMAB
     Indication: DERMATITIS ATOPIC
     Dosage: 300 MG, QOW
     Route: 058
     Dates: start: 20170616, end: 201903
  4. SIMVASTATIN. [Concomitant]
     Active Substance: SIMVASTATIN
  5. TUMS [Concomitant]
     Active Substance: CALCIUM CARBONATE
  6. LISINOPRIL. [Concomitant]
     Active Substance: LISINOPRIL
  7. DUPIXENT [Suspect]
     Active Substance: DUPILUMAB
     Dosage: UNK
     Route: 058
  8. VITAMIN D3 [Concomitant]
     Active Substance: CHOLECALCIFEROL
  9. DULOXETINE. [Concomitant]
     Active Substance: DULOXETINE
  10. ACAMPROSATE CALCIUM. [Concomitant]
     Active Substance: ACAMPROSATE CALCIUM

REACTIONS (1)
  - Dermatitis atopic [Unknown]
